FAERS Safety Report 5314730-0 (Version None)
Quarter: 2007Q2

REPORT INFORMATION
  Report Type: 
  Country: None (occurrence: None)
  Receive Date: 20070427
  Receipt Date: 20070413
  Transmission Date: 20071010
  Serious: Yes (Death, Hospitalization)
  Sender: FDA-Public Use
  Company Number: 2006SP008395

PATIENT
  Age: 70 Year
  Sex: Male

DRUGS (3)
  1. TEMODAL [Suspect]
     Indication: GLIOBLASTOMA
     Dosage: 75 MG/M2; PO
     Route: 048
     Dates: start: 20060220, end: 20060412
  2. ZOFRAN [Suspect]
     Dates: start: 20060220, end: 20060412
  3. DEPAKENE [Concomitant]

REACTIONS (6)
  - ALANINE AMINOTRANSFERASE INCREASED [None]
  - BLOOD ALKALINE PHOSPHATASE INCREASED [None]
  - GLIOBLASTOMA [None]
  - HEPATOTOXICITY [None]
  - JAUNDICE [None]
  - MALIGNANT NEOPLASM PROGRESSION [None]
